FAERS Safety Report 10496050 (Version 1)
Quarter: 2014Q4

REPORT INFORMATION
  Report Type: Spontaneous
  Country: US (occurrence: US)
  Receive Date: 20141003
  Receipt Date: 20141003
  Transmission Date: 20150528
  Serious: No
  Sender: FDA-Public Use
  Company Number: US-LUNDBECK-DKLU1103380

PATIENT
  Sex: Male

DRUGS (5)
  1. SABRIL [Suspect]
     Active Substance: VIGABATRIN
     Indication: SEIZURE
     Dates: start: 20140819, end: 20140831
  2. SABRIL [Suspect]
     Active Substance: VIGABATRIN
     Dates: start: 20140904
  3. SABRIL [Suspect]
     Active Substance: VIGABATRIN
     Dates: start: 20140901, end: 20140903
  4. SABRIL [Suspect]
     Active Substance: VIGABATRIN
     Indication: COMPLEX PARTIAL SEIZURES
     Dates: start: 20140901
  5. SABRIL [Suspect]
     Active Substance: VIGABATRIN
     Dates: start: 20140818

REACTIONS (2)
  - Fall [Unknown]
  - Gait disturbance [Unknown]
